FAERS Safety Report 7887093-4 (Version None)
Quarter: 2011Q4

REPORT INFORMATION
  Report Type: 
  Country: None (occurrence: None)
  Receive Date: 20111102
  Receipt Date: 20110714
  Transmission Date: 20120403
  Serious: No
  Sender: FDA-Public Use
  Company Number: US-AMGEN-USASP2011035888

PATIENT
  Sex: Female

DRUGS (2)
  1. ENBREL [Suspect]
     Indication: ANKYLOSING SPONDYLITIS
     Dosage: 50 MG, QWK
     Dates: start: 20110211, end: 20110401
  2. SIMPONI [Concomitant]

REACTIONS (4)
  - MUSCULOSKELETAL PAIN [None]
  - JOINT SWELLING [None]
  - ADVERSE REACTION [None]
  - DRUG INEFFECTIVE [None]
